FAERS Safety Report 18343658 (Version 8)
Quarter: 2024Q3

REPORT INFORMATION
  Report Type: Report from Study
  Country: GB (occurrence: GB)
  Receive Date: 20201005
  Receipt Date: 20240702
  Transmission Date: 20241017
  Serious: Yes (Hospitalization, Other)
  Sender: AKCEA THERAPEUTICS
  Company Number: GB-AKCEA THERAPEUTICS-2020IS001490

PATIENT

DRUGS (1)
  1. TEGSEDI [Suspect]
     Active Substance: INOTERSEN SODIUM
     Indication: Hereditary neuropathic amyloidosis
     Dosage: 284 MILLIGRAM
     Route: 058
     Dates: end: 20201001

REACTIONS (6)
  - Nephrotic syndrome [Unknown]
  - Renal impairment [Unknown]
  - Renal amyloidosis [Unknown]
  - Glomerulonephritis [Unknown]
  - Throat tightness [Unknown]
  - Lymphadenopathy [Unknown]

NARRATIVE: CASE EVENT DATE: 20200922
